FAERS Safety Report 4819694-1 (Version None)
Quarter: 2005Q4

REPORT INFORMATION
  Report Type: 
  Country: None (occurrence: None)
  Receive Date: 20051102
  Receipt Date: 20051102
  Transmission Date: 20060501
  Serious: No
  Sender: FDA-Public Use
  Company Number: None

PATIENT
  Age: 71 Year
  Sex: Male
  Weight: 127.3 kg

DRUGS (5)
  1. WARFARIN SODIUM [Suspect]
     Indication: DEEP VEIN THROMBOSIS
     Dosage: 4 MG Q DAILY
     Dates: start: 20050726, end: 20050908
  2. HEPARIN [Suspect]
     Dosage: 1440 UNITS /HR FOR 48 HRS
     Dates: start: 20050822, end: 20050823
  3. TIMENTIN [Concomitant]
  4. VANCOMYCIN [Concomitant]
  5. DOPAMINE [Concomitant]

REACTIONS (3)
  - ACTIVATED PARTIAL THROMBOPLASTIN TIME PROLONGED [None]
  - INTERNATIONAL NORMALISED RATIO INCREASED [None]
  - POST PROCEDURAL HAEMATOMA [None]
